FAERS Safety Report 18313705 (Version 2)
Quarter: 2020Q4

REPORT INFORMATION
  Report Type: Spontaneous
  Country: JP (occurrence: JP)
  Receive Date: 20200925
  Receipt Date: 20201216
  Transmission Date: 20210113
  Serious: Yes (Life-Threatening, Hospitalization)
  Sender: FDA-Public Use
  Company Number: JP-JNJFOC-20200939666

PATIENT
  Age: 87 Year
  Sex: Male
  Weight: 61.3 kg

DRUGS (15)
  1. LYRICA [Concomitant]
     Active Substance: PREGABALIN
     Dosage: 150 MILLIGRAM, 1/DAY
     Route: 065
     Dates: start: 20190326
  2. TAKELDA [Concomitant]
     Active Substance: ASPIRIN\LANSOPRAZOLE
     Dosage: UNK
     Route: 065
  3. HERBESSER [Concomitant]
     Active Substance: DILTIAZEM HYDROCHLORIDE
     Dosage: UNK
     Route: 065
  4. MAINTATE [Concomitant]
     Active Substance: BISOPROLOL FUMARATE
     Dosage: UNK
     Route: 065
  5. FRANDOL [Concomitant]
     Active Substance: ISOSORBIDE DINITRATE
     Dosage: UNK
     Route: 065
  6. ATOZET [Concomitant]
     Active Substance: ATORVASTATIN CALCIUM\EZETIMIBE
     Dosage: UNK
     Route: 065
  7. YOKUKANSAN [Concomitant]
     Active Substance: HERBALS
     Dosage: UNK
     Route: 065
  8. TRAMADOL HYDROCHLORIDE. [Suspect]
     Active Substance: TRAMADOL HYDROCHLORIDE
     Indication: POST HERPETIC NEURALGIA
     Dosage: UNK
     Route: 048
  9. HARNAL [Concomitant]
     Active Substance: TAMSULOSIN HYDROCHLORIDE
     Dosage: UNK
     Route: 065
  10. AZILVA [Concomitant]
     Active Substance: AZILSARTAN KAMEDOXOMIL
     Dosage: UNK
     Route: 065
  11. THYRADIN [Concomitant]
     Active Substance: LEVOTHYROXINE
     Dosage: UNK
     Route: 065
  12. SIGMART [Concomitant]
     Active Substance: NICORANDIL
     Dosage: UNK
     Route: 065
  13. TRAMADOL HYDROCHLORIDE. [Suspect]
     Active Substance: TRAMADOL HYDROCHLORIDE
     Dosage: 50 MILLIGRAM, 4/DAY
     Route: 048
     Dates: start: 20190409, end: 201904
  14. TRAVELMIN [DIPHENHYDRAMINE HYDROCHLORIDE;DIPROPHYLLINE] [Concomitant]
     Dosage: 3 DOSAGE FORM, 1/DAY
     Route: 065
     Dates: start: 20190409
  15. CHOIJOKITO [Concomitant]
     Dosage: UNK
     Route: 065

REACTIONS (4)
  - Respiratory failure [Recovering/Resolving]
  - Altered state of consciousness [Unknown]
  - Drug level above therapeutic [Unknown]
  - Dyskinesia [Unknown]

NARRATIVE: CASE EVENT DATE: 2019
